FAERS Safety Report 24366821 (Version 2)
Quarter: 2024Q4

REPORT INFORMATION
  Report Type: Spontaneous
  Country: FR (occurrence: FR)
  Receive Date: 20240926
  Receipt Date: 20241105
  Transmission Date: 20250114
  Serious: Yes (Other)
  Sender: FRESENIUS KABI
  Company Number: None

PATIENT
  Age: 38 Year
  Sex: Female
  Weight: 125 kg

DRUGS (18)
  1. LIDOCAINE [Suspect]
     Active Substance: LIDOCAINE
     Indication: Induction of anaesthesia
     Dosage: UNK
     Route: 042
     Dates: start: 20240201, end: 20240201
  2. LIDOCAINE [Suspect]
     Active Substance: LIDOCAINE
     Dosage: UNK
     Route: 042
     Dates: start: 20240201, end: 20240201
  3. LIDOCAINE [Suspect]
     Active Substance: LIDOCAINE
     Dosage: UNK
     Route: 042
     Dates: start: 20240201, end: 20240201
  4. LIDOCAINE [Suspect]
     Active Substance: LIDOCAINE
     Dosage: UNK
     Route: 042
     Dates: start: 20240201, end: 20240201
  5. DIPRIVAN [Suspect]
     Active Substance: PROPOFOL
     Indication: Induction of anaesthesia
     Dosage: UNK
     Route: 042
     Dates: start: 20240201, end: 20240201
  6. DIPRIVAN [Suspect]
     Active Substance: PROPOFOL
     Dosage: UNK
     Route: 042
     Dates: start: 20240201, end: 20240201
  7. DIPRIVAN [Suspect]
     Active Substance: PROPOFOL
     Dosage: UNK
     Route: 042
     Dates: start: 20240201, end: 20240201
  8. DIPRIVAN [Suspect]
     Active Substance: PROPOFOL
     Dosage: UNK
     Route: 042
     Dates: start: 20240201, end: 20240201
  9. KETAMINE [Suspect]
     Active Substance: KETAMINE
     Indication: Induction of anaesthesia
     Dosage: UNK
     Route: 042
     Dates: start: 20240201, end: 20240201
  10. KETAMINE [Suspect]
     Active Substance: KETAMINE
     Dosage: UNK
     Route: 042
     Dates: start: 20240201, end: 20240201
  11. KETAMINE [Suspect]
     Active Substance: KETAMINE
     Dosage: UNK
     Route: 042
     Dates: start: 20240201, end: 20240201
  12. KETAMINE [Suspect]
     Active Substance: KETAMINE
     Dosage: UNK
     Route: 042
     Dates: start: 20240201, end: 20240201
  13. SUCCINYLCHOLINE [Suspect]
     Active Substance: SUCCINYLCHOLINE\SUCCINYLCHOLINE CHLORIDE
     Indication: Induction of anaesthesia
     Dosage: UNK
     Route: 042
     Dates: start: 20240201, end: 20240201
  14. SUCCINYLCHOLINE [Suspect]
     Active Substance: SUCCINYLCHOLINE\SUCCINYLCHOLINE CHLORIDE
     Dosage: UNK
     Route: 042
     Dates: start: 20240201, end: 20240201
  15. SUFENTANIL [Suspect]
     Active Substance: SUFENTANIL
     Indication: Induction of anaesthesia
     Dosage: UNK
     Route: 042
     Dates: start: 20240201, end: 20240201
  16. SUFENTANIL [Suspect]
     Active Substance: SUFENTANIL
     Dosage: UNK
     Route: 042
     Dates: start: 20240201, end: 20240201
  17. HYDROCHLOROTHIAZIDE\NEBIVOLOL HYDROCHLORIDE [Concomitant]
     Active Substance: HYDROCHLOROTHIAZIDE\NEBIVOLOL HYDROCHLORIDE
     Indication: Hypertension
     Dosage: 1 DOSAGE FORM, QD
     Route: 048
  18. HYDROCHLOROTHIAZIDE\NEBIVOLOL HYDROCHLORIDE [Concomitant]
     Active Substance: HYDROCHLOROTHIAZIDE\NEBIVOLOL HYDROCHLORIDE
     Dosage: 1 DOSAGE FORM, QD
     Route: 048

REACTIONS (1)
  - Anaphylactic shock [Recovered/Resolved]

NARRATIVE: CASE EVENT DATE: 20240201
